FAERS Safety Report 16163448 (Version 1)
Quarter: 2019Q2

REPORT INFORMATION
  Report Type: Spontaneous
  Country: MX (occurrence: MX)
  Receive Date: 20190405
  Receipt Date: 20190405
  Transmission Date: 20190711
  Serious: Yes (Hospitalization, Other)
  Sender: FDA-Public Use
  Company Number: MX-ASTRAZENECA-2019SE51654

PATIENT
  Age: 20718 Day
  Sex: Male
  Weight: 70 kg

DRUGS (8)
  1. NEXIUM [Suspect]
     Active Substance: ESOMEPRAZOLE MAGNESIUM
     Indication: GASTRITIS
     Route: 048
     Dates: start: 20060101, end: 20080101
  2. POMADA DE BELLADONA [Concomitant]
     Indication: PAIN
     Dosage: AS REQUIRED
     Route: 061
     Dates: start: 20170201
  3. MAMISAN [Concomitant]
     Indication: PAIN
     Dosage: AS REQUIRED
     Route: 061
     Dates: start: 20170201
  4. ALEVIAN DUO [Concomitant]
     Indication: COLITIS
     Route: 048
     Dates: start: 20060101, end: 20080101
  5. NEXIUM [Suspect]
     Active Substance: ESOMEPRAZOLE MAGNESIUM
     Indication: GASTRITIS
     Route: 048
     Dates: start: 20060101
  6. ALEVIAN [Concomitant]
     Indication: COLITIS
     Route: 048
  7. ACIDO FOLICO [Concomitant]
     Active Substance: CYANOCOBALAMIN\FOLIC ACID\PYRIDOXINE HYDROCHLORIDE
     Route: 048
  8. SEROQUEL [Suspect]
     Active Substance: QUETIAPINE FUMARATE
     Indication: INSOMNIA
     Dosage: 25.0MG AS REQUIRED
     Route: 048
     Dates: start: 20180901

REACTIONS (26)
  - Weight decreased [Not Recovered/Not Resolved]
  - Stress [Not Recovered/Not Resolved]
  - Constipation [Unknown]
  - Flatulence [Not Recovered/Not Resolved]
  - Diarrhoea [Unknown]
  - Wheezing [Unknown]
  - Nocturia [Not Recovered/Not Resolved]
  - Drug interaction [Unknown]
  - Erythema [Not Recovered/Not Resolved]
  - Insomnia [Not Recovered/Not Resolved]
  - Vomiting [Unknown]
  - Gastrointestinal sounds abnormal [Not Recovered/Not Resolved]
  - Skin disorder [Not Recovered/Not Resolved]
  - Urethral stenosis [Recovered/Resolved]
  - Orchitis noninfective [Not Recovered/Not Resolved]
  - Gastrointestinal disorder [Unknown]
  - Neuralgia [Unknown]
  - Groin pain [Not Recovered/Not Resolved]
  - Dry mouth [Not Recovered/Not Resolved]
  - Nausea [Unknown]
  - Blood cholesterol increased [Unknown]
  - Nervousness [Not Recovered/Not Resolved]
  - Prostatic disorder [Unknown]
  - Pruritus [Not Recovered/Not Resolved]
  - Micturition urgency [Unknown]
  - Abdominal pain upper [Unknown]

NARRATIVE: CASE EVENT DATE: 20060101
